FAERS Safety Report 9753914 (Version 3)
Quarter: 2014Q1

REPORT INFORMATION
  Report Type: Spontaneous
  Country: GB (occurrence: None)
  Receive Date: 20131211
  Receipt Date: 20140224
  Transmission Date: 20141002
  Serious: Yes (Death, Life-Threatening, Disabling)
  Sender: FDA-Public Use
  Company Number: AUR-APL-2013-10109

PATIENT
  Age: 81 Year
  Sex: Female
  Weight: 47.6 kg

DRUGS (15)
  1. AMOXICILLIN + CLAVULANIC ACID [Suspect]
     Indication: PRODUCT USED FOR UNKNOWN INDICATION
     Dosage: 1875 MG (625 MG, 3 IN 1 D)
     Route: 048
     Dates: start: 20130916, end: 20130923
  2. ASPIRIN (ACETYSALICYLIC ACID) [Concomitant]
  3. CALCEOS (LEKOVIT CA) [Concomitant]
  4. CANDESARTAN (CANDESARTAN) [Concomitant]
  5. CHOLESTYRAMINE (COLESTYRAMINE) [Concomitant]
  6. CITALOPRAM (CITALOPRAM) [Concomitant]
  7. EURAX (CROTAMITON) [Concomitant]
  8. EZETIMIBE (EZETIMIBE) (TABLET) [Concomitant]
  9. FERROUS FUMARATE (FERROUS FUMARATE) [Concomitant]
  10. ISOKET RETARD (ISOSORBIDE DINITRATE) [Concomitant]
  11. LACTULOSE (LACTULOSE) [Concomitant]
  12. NICORANDIL (NICORANDIL) [Concomitant]
  13. OMACOR (OMEGA-3-ACID ETHYL ESTER) [Concomitant]
  14. OMEPRAZOLE (OMEPRAZOLE) [Concomitant]
  15. PREDNISOLONE (PREDNISOLONE) [Concomitant]

REACTIONS (4)
  - Liver function test abnormal [None]
  - Liver injury [None]
  - Cholestasis [None]
  - Pneumonia [None]
